FAERS Safety Report 8925101 (Version 1)
Quarter: 2012Q4

REPORT INFORMATION
  Report Type: Spontaneous
  Country: US (occurrence: None)
  Receive Date: 20121126
  Receipt Date: 20121126
  Transmission Date: 20130627
  Serious: Yes (Hospitalization)
  Sender: FDA-Public Use
  Company Number: None

PATIENT
  Age: 16 Year
  Sex: Male
  Weight: 92 kg

DRUGS (2)
  1. ISOTRETINOIN [Suspect]
     Indication: CYSTIC ACNE
  2. ISOTRETINOIN [Suspect]
     Route: 048

REACTIONS (8)
  - Haemoptysis [None]
  - Cough [None]
  - Arthralgia [None]
  - Myalgia [None]
  - Epistaxis [None]
  - Haematuria [None]
  - Mycoplasma test positive [None]
  - Vasculitis [None]
